FAERS Safety Report 4970632-0 (Version None)
Quarter: 2006Q2

REPORT INFORMATION
  Report Type: 
  Country: None (occurrence: None)
  Receive Date: 20060412
  Receipt Date: 20060327
  Transmission Date: 20061013
  Serious: Yes (Death)
  Sender: FDA-Public Use
  Company Number: US-NOVOPROD-251971

PATIENT
  Age: 77 Year
  Sex: Male
  Weight: 94 kg

DRUGS (6)
  1. NOVOSEVEN [Suspect]
     Indication: ILL-DEFINED DISORDER
     Dosage: 2.4 MG, SINGLE
     Route: 042
  2. HEPARIN [Concomitant]
     Indication: ILL-DEFINED DISORDER
     Dosage: 33000 U, UNK
  3. PROTAMINE SULFATE [Concomitant]
     Indication: ILL-DEFINED DISORDER
     Dosage: 250 UNK, UNK
  4. AMICAR [Concomitant]
     Indication: ILL-DEFINED DISORDER
  5. FRESH FROZEN PLASMA [Concomitant]
     Indication: ILL-DEFINED DISORDER
     Dosage: 4 U, UNK
  6. KRIOPRECIPITAT [Concomitant]
     Indication: ILL-DEFINED DISORDER
     Dosage: 10 U, UNK

REACTIONS (1)
  - DEATH [None]
